FAERS Safety Report 13965917 (Version 2)
Quarter: 2017Q4

REPORT INFORMATION
  Report Type: Report from Study
  Country: US (occurrence: US)
  Receive Date: 20170913
  Receipt Date: 20171004
  Transmission Date: 20180320
  Serious: Yes (Other)
  Sender: FDA-Public Use
  Company Number: US-GILEAD-2017-0288270

PATIENT
  Age: 71 Year
  Sex: Male
  Weight: 95 kg

DRUGS (3)
  1. AZTREONAM LYSINE [Suspect]
     Active Substance: AZTREONAM LYSINE
     Indication: CYSTIC FIBROSIS
     Dosage: 75 UNK, UNK
     Route: 055
  2. AZTREONAM LYSINE [Suspect]
     Active Substance: AZTREONAM LYSINE
     Dosage: 75 MG, UNK
     Route: 055
     Dates: start: 201708, end: 201709
  3. AZTREONAM LYSINE [Suspect]
     Active Substance: AZTREONAM LYSINE
     Indication: PSEUDOMONAS INFECTION
     Dosage: 75 MG, TID, 28 DAYS ON/28 DAYS OFF
     Route: 055
     Dates: start: 20170810, end: 201708

REACTIONS (9)
  - Dyspnoea [Recovered/Resolved]
  - Off label use [Recovered/Resolved]
  - Cough [Unknown]
  - Lower respiratory tract congestion [Recovered/Resolved]
  - Cough [Recovered/Resolved]
  - Unevaluable event [Unknown]
  - Product package associated injury [Unknown]
  - Unevaluable event [Unknown]
  - Wheezing [Recovered/Resolved]

NARRATIVE: CASE EVENT DATE: 20170810
